FAERS Safety Report 6124293-8 (Version None)
Quarter: 2009Q1

REPORT INFORMATION
  Report Type: 
  Country: None (occurrence: None)
  Receive Date: 20090317
  Receipt Date: 20090306
  Transmission Date: 20090719
  Serious: Yes (Hospitalization, Other)
  Sender: FDA-Public Use
  Company Number: 2009AP000961

PATIENT
  Age: 11 Year
  Sex: Male

DRUGS (4)
  1. VALPROIC ACID SYRUP [Suspect]
     Indication: EPILEPSY
  2. RISPERIDONE [Suspect]
     Indication: PSYCHOTIC BEHAVIOUR
     Dosage: 1.125 MG; QD;
  3. METHYLPHENIDATE HCL [Concomitant]
  4. ETHOSUXIMIDE [Concomitant]

REACTIONS (10)
  - AGGRESSION [None]
  - AGITATION [None]
  - DELUSION [None]
  - DRUG INTERACTION [None]
  - EDUCATIONAL PROBLEM [None]
  - HALLUCINATIONS, MIXED [None]
  - HYPERAMMONAEMIA [None]
  - INAPPROPRIATE AFFECT [None]
  - MANIA [None]
  - PHYSICAL ASSAULT [None]
